FAERS Safety Report 8519953 (Version 2)
Quarter: 2012Q4

REPORT INFORMATION
  Report Type: 
  Country: US (occurrence: US)
  Receive Date: 20120418
  Receipt Date: 20121120
  Transmission Date: 20130627
  Serious: Yes (Hospitalization)
  Sender: FDA-Public Use
  Company Number: US-ASTRAZENECA-2012SE09220

PATIENT
  Age: 68 Year
  Sex: Female

DRUGS (2)
  1. NEXIUM [Suspect]
     Route: 048
  2. IP PANDANTOPRAZOLE [Concomitant]

REACTIONS (6)
  - Dyspepsia [Unknown]
  - Vomiting [Unknown]
  - Burn oesophageal [Unknown]
  - Aphonia [Unknown]
  - Macular degeneration [Unknown]
  - Glaucoma [Unknown]
